FAERS Safety Report 4303226-0 (Version None)
Quarter: 2004Q1

REPORT INFORMATION
  Report Type: 
  Country: None (occurrence: None)
  Receive Date: 20040223
  Receipt Date: 20040213
  Transmission Date: 20041129
  Serious: Yes (Death)
  Sender: FDA-Public Use
  Company Number: USA-2003-0007481

PATIENT
  Age: 51 Year
  Sex: Female

DRUGS (3)
  1. OXYCODONE HCL [Suspect]
  2. BUPROPION HCL [Suspect]
  3. CAFFEINE (CAFFEINE) [Suspect]

REACTIONS (7)
  - ARTERIOSCLEROSIS [None]
  - COMA [None]
  - DRUG TOXICITY [None]
  - FATIGUE [None]
  - PERICARDIAL EFFUSION [None]
  - SOMNOLENCE [None]
  - TOXICOLOGIC TEST ABNORMAL [None]
